FAERS Safety Report 15642205 (Version 1)
Quarter: 2018Q4

REPORT INFORMATION
  Report Type: Spontaneous
  Country: US (occurrence: US)
  Receive Date: 20181114
  Receipt Date: 20181114
  Transmission Date: 20190205
  Serious: Yes (Life-Threatening, Hospitalization)
  Sender: FDA-Public Use
  Company Number: None

PATIENT
  Age: 63 Year
  Sex: Female
  Weight: 103.05 kg

DRUGS (9)
  1. AZOR [Suspect]
     Active Substance: AMLODIPINE BESYLATE\OLMESARTAN MEDOXOMIL
     Indication: BLOOD PRESSURE MEASUREMENT
     Dosage: ?          QUANTITY:2 TABLET(S);?
     Route: 048
     Dates: end: 20181114
  2. LOSARTAN. [Concomitant]
     Active Substance: LOSARTAN
  3. TENORMIN [Concomitant]
     Active Substance: ATENOLOL
  4. DIOVAN [Suspect]
     Active Substance: VALSARTAN
  5. LOSARTAN. [Suspect]
     Active Substance: LOSARTAN
  6. C PAP [Concomitant]
  7. SYNTHROID [Concomitant]
     Active Substance: LEVOTHYROXINE SODIUM
  8. AZOR [Suspect]
     Active Substance: AMLODIPINE BESYLATE\OLMESARTAN MEDOXOMIL
     Indication: CARDIAC DISORDER
     Dosage: ?          QUANTITY:2 TABLET(S);?
     Route: 048
     Dates: end: 20181114
  9. GLUPHAGE [Concomitant]

REACTIONS (14)
  - Dizziness [None]
  - Heart rate increased [None]
  - Thirst [None]
  - Suicidal ideation [None]
  - Arthralgia [None]
  - Syncope [None]
  - Urticaria [None]
  - Pain [None]
  - Alopecia [None]
  - Diarrhoea [None]
  - Lip swelling [None]
  - Uterine haemorrhage [None]
  - Surgery [None]
  - Insomnia [None]

NARRATIVE: CASE EVENT DATE: 20160801
